FAERS Safety Report 5062900-1 (Version None)
Quarter: 2006Q3

REPORT INFORMATION
  Report Type: 
  Country: None (occurrence: None)
  Receive Date: 20060724
  Receipt Date: 20060713
  Transmission Date: 20061208
  Serious: Yes (Other)
  Sender: FDA-Public Use
  Company Number: 2006064562

PATIENT
  Age: 8 Year
  Sex: Female

DRUGS (1)
  1. GENOTROPIN [Suspect]
     Indication: PRADER-WILLI SYNDROME
     Dosage: 0.9 MG (6 TIMES/WEEK), SUBCUTANEOUS
     Route: 058
     Dates: start: 20020531

REACTIONS (3)
  - EPILEPSY [None]
  - GRAND MAL CONVULSION [None]
  - HEADACHE [None]
